FAERS Safety Report 8791363 (Version 1)
Quarter: 2012Q4

REPORT INFORMATION
  Report Type: Spontaneous
  Country: US (occurrence: None)
  Receive Date: 20120912
  Receipt Date: 20120912
  Transmission Date: 20130627
  Serious: Yes (Hospitalization)
  Sender: FDA-Public Use
  Company Number: TPA2012A06263

PATIENT
  Sex: Male

DRUGS (1)
  1. ULORIC [Suspect]
     Dates: start: 20120810

REACTIONS (1)
  - Toe amputation [None]
